FAERS Safety Report 7897719-7 (Version None)
Quarter: 2011Q4

REPORT INFORMATION
  Report Type: 
  Country: None (occurrence: None)
  Receive Date: 20111107
  Receipt Date: 20111101
  Transmission Date: 20120403
  Serious: Yes (Death, Other)
  Sender: FDA-Public Use
  Company Number: US-PFIZER INC-2011205738

PATIENT
  Sex: Female
  Weight: 73.9 kg

DRUGS (6)
  1. SUTENT [Suspect]
     Indication: ANGIOSARCOMA
     Dosage: 50 MG, 1X/DAY
     Route: 048
     Dates: start: 20100201
  2. ADVAIR DISKUS 100/50 [Concomitant]
     Dosage: UNK
  3. SUTENT [Suspect]
     Dosage: 25 MG, 1X/DAY
     Route: 048
     Dates: start: 20100101
  4. TYLENOL-500 [Concomitant]
     Dosage: UNK
  5. SUTENT [Suspect]
     Dosage: 37.5 MG, 1X/DAY
     Route: 048
     Dates: start: 20100101
  6. IBUPROFEN [Concomitant]
     Dosage: UNK

REACTIONS (3)
  - DISEASE PROGRESSION [None]
  - ANGIOSARCOMA [None]
  - NEURALGIA [None]
